FAERS Safety Report 7781930-X (Version None)
Quarter: 2011Q3

REPORT INFORMATION
  Report Type: 
  Country: None (occurrence: None)
  Receive Date: 20110927
  Receipt Date: 20110328
  Transmission Date: 20111222
  Serious: No
  Sender: FDA-Public Use
  Company Number: US-BAYER-2011-026937

PATIENT
  Sex: Female

DRUGS (1)
  1. ULTRAVIST 150 [Suspect]

REACTIONS (2)
  - INJECTION SITE REACTION [None]
  - OEDEMA PERIPHERAL [None]
